FAERS Safety Report 11235526 (Version 8)
Quarter: 2015Q4

REPORT INFORMATION
  Report Type: Spontaneous
  Country: IT (occurrence: IT)
  Receive Date: 20150702
  Receipt Date: 20151126
  Transmission Date: 20160304
  Serious: Yes (Hospitalization, Other)
  Sender: FDA-Public Use
  Company Number: IT-ALEXION PHARMACEUTICALS INC.-A201502425

PATIENT
  Age: 13 Year
  Sex: Female
  Weight: 50 kg

DRUGS (1)
  1. SOLIRIS [Suspect]
     Active Substance: ECULIZUMAB
     Indication: HAEMOLYTIC URAEMIC SYNDROME
     Dosage: UNK MG, UNK
     Route: 042

REACTIONS (9)
  - Respiratory failure [Unknown]
  - Myositis [Recovering/Resolving]
  - Condition aggravated [Recovering/Resolving]
  - Pericarditis [Unknown]
  - Autoimmune disorder [Unknown]
  - Myasthenia gravis [Not Recovered/Not Resolved]
  - Microangiopathy [Recovering/Resolving]
  - Serositis [Unknown]
  - Blood creatine phosphokinase increased [Unknown]

NARRATIVE: CASE EVENT DATE: 201505
